FAERS Safety Report 14890203 (Version 1)
Quarter: 2018Q2

REPORT INFORMATION
  Report Type: Spontaneous
  Country: US (occurrence: US)
  Receive Date: 20180514
  Receipt Date: 20180514
  Transmission Date: 20180711
  Serious: No
  Sender: FDA-Public Use
  Company Number: US-PFIZER INC-2018188339

PATIENT
  Sex: Female

DRUGS (1)
  1. XELJANZ XR [Suspect]
     Active Substance: TOFACITINIB CITRATE
     Dosage: 11 MG, UNK

REACTIONS (7)
  - Dizziness [Unknown]
  - Chest pain [Unknown]
  - Cardiac disorder [Unknown]
  - Vision blurred [Unknown]
  - Fatigue [Unknown]
  - Dyspnoea [Unknown]
  - Lung disorder [Unknown]
